FAERS Safety Report 7419595-9 (Version None)
Quarter: 2011Q1

REPORT INFORMATION
  Report Type: 
  Country: None (occurrence: None)
  Receive Date: 20110302
  Receipt Date: 20101101
  Transmission Date: 20110831
  Serious: No
  Sender: FDA-Public Use
  Company Number: 021438

PATIENT
  Sex: Female
  Weight: 79.4 kg

DRUGS (4)
  1. FLAGYL [Concomitant]
  2. CIMZIA [Suspect]
     Indication: CROHN'S DISEASE
     Dosage: (2 SHOTS MONTHLY SUBCUTANEOUS)
     Route: 058
     Dates: start: 20100212
  3. AZATHIOPRINE [Concomitant]
  4. IRON [Concomitant]

REACTIONS (3)
  - HEART RATE DECREASED [None]
  - DRUG INEFFECTIVE [None]
  - CROHN'S DISEASE [None]
